FAERS Safety Report 20228351 (Version 1)
Quarter: 2021Q4

REPORT INFORMATION
  Report Type: Spontaneous
  Country: US (occurrence: US)
  Receive Date: 20211224
  Receipt Date: 20211224
  Transmission Date: 20220304
  Serious: No
  Sender: FDA-Public Use
  Company Number: US-BAYER-2021A273831

PATIENT
  Age: 44 Year

DRUGS (1)
  1. PRIMOVIST [Suspect]
     Active Substance: GADOXETATE DISODIUM
     Dosage: 10 ML, ONCE
     Route: 042
     Dates: start: 20211213, end: 20211213

REACTIONS (1)
  - Rash [Recovered/Resolved]
